FAERS Safety Report 4421422-9 (Version None)
Quarter: 2004Q3

REPORT INFORMATION
  Report Type: 
  Country: None (occurrence: None)
  Receive Date: 20040709
  Receipt Date: 20040413
  Transmission Date: 20050211
  Serious: No
  Sender: FDA-Public Use
  Company Number: 2004S1000068

PATIENT
  Sex: Female

DRUGS (3)
  1. CUBICIN [Suspect]
     Indication: INFECTION
     Dosage: 4 MG/KG; QOD, IV
     Route: 042
     Dates: start: 20040401
  2. VANCOMYCIN [Concomitant]
  3. ZYVOX [Concomitant]

REACTIONS (1)
  - BLOOD CREATININE INCREASED [None]
